FAERS Safety Report 18908304 (Version 6)
Quarter: 2023Q4

REPORT INFORMATION
  Report Type: Spontaneous
  Country: CA (occurrence: CA)
  Receive Date: 20210218
  Receipt Date: 20231010
  Transmission Date: 20240109
  Serious: Yes (Hospitalization)
  Sender: FDA-Public Use
  Company Number: CA-JNJFOC-20210216275

PATIENT
  Age: 74 Year
  Sex: Male

DRUGS (33)
  1. SPORANOX [Suspect]
     Active Substance: ITRACONAZOLE
     Indication: Asthma
     Route: 065
  2. FLUTICASONE FUROATE [Suspect]
     Active Substance: FLUTICASONE FUROATE
     Indication: Product used for unknown indication
     Route: 065
  3. HYTRIN [Suspect]
     Active Substance: TERAZOSIN HYDROCHLORIDE
     Indication: Product used for unknown indication
     Route: 048
  4. MEPOLIZUMAB [Suspect]
     Active Substance: MEPOLIZUMAB
     Indication: Asthma
     Route: 042
  5. MEPOLIZUMAB [Suspect]
     Active Substance: MEPOLIZUMAB
     Route: 042
  6. PAROXETINE HYDROCHLORIDE [Suspect]
     Active Substance: PAROXETINE HYDROCHLORIDE
     Indication: Product used for unknown indication
     Route: 065
  7. PREDNISONE [Suspect]
     Active Substance: PREDNISONE
     Indication: Product used for unknown indication
     Route: 065
  8. PREDNISONE [Suspect]
     Active Substance: PREDNISONE
     Route: 065
  9. PREDNISONE [Suspect]
     Active Substance: PREDNISONE
     Route: 065
  10. PREDNISONE [Suspect]
     Active Substance: PREDNISONE
     Route: 065
  11. PREDNISONE [Suspect]
     Active Substance: PREDNISONE
     Route: 065
  12. PREDNISONE [Suspect]
     Active Substance: PREDNISONE
     Route: 065
  13. PREDNISONE [Suspect]
     Active Substance: PREDNISONE
     Route: 065
  14. PREDNISONE [Suspect]
     Active Substance: PREDNISONE
     Route: 065
  15. PREDNISONE [Suspect]
     Active Substance: PREDNISONE
     Route: 065
  16. PREDNISONE [Suspect]
     Active Substance: PREDNISONE
     Route: 065
  17. PREVACID [Suspect]
     Active Substance: LANSOPRAZOLE
     Indication: Product used for unknown indication
     Route: 065
  18. SYMBICORT [Suspect]
     Active Substance: BUDESONIDE\FORMOTEROL FUMARATE DIHYDRATE
     Indication: Asthma
     Route: 055
  19. SYMBICORT [Suspect]
     Active Substance: BUDESONIDE\FORMOTEROL FUMARATE DIHYDRATE
     Indication: Product used for unknown indication
     Route: 055
  20. SYMBICORT [Suspect]
     Active Substance: BUDESONIDE\FORMOTEROL FUMARATE DIHYDRATE
     Route: 065
  21. VENTOLIN [Suspect]
     Active Substance: ALBUTEROL SULFATE
     Indication: Asthma
     Route: 065
  22. VENTOLIN HFA [Suspect]
     Active Substance: ALBUTEROL SULFATE
     Indication: Product used for unknown indication
     Route: 065
  23. WELLBUTRIN [Suspect]
     Active Substance: BUPROPION HYDROCHLORIDE
     Indication: Product used for unknown indication
     Route: 065
  24. WELLBUTRIN [Suspect]
     Active Substance: BUPROPION HYDROCHLORIDE
     Route: 065
  25. WELLBUTRIN [Suspect]
     Active Substance: BUPROPION HYDROCHLORIDE
     Route: 065
  26. FLUTICASONE FUROATE [Suspect]
     Active Substance: FLUTICASONE FUROATE
     Indication: Product used for unknown indication
     Route: 065
  27. NUCALA [Suspect]
     Active Substance: MEPOLIZUMAB
     Indication: Asthma
     Route: 065
  28. NUCALA [Suspect]
     Active Substance: MEPOLIZUMAB
     Route: 065
  29. NUCALA [Suspect]
     Active Substance: MEPOLIZUMAB
     Route: 042
  30. ALBUTEROL [Suspect]
     Active Substance: ALBUTEROL
     Indication: Asthma
     Route: 065
  31. BUDESONIDE [Suspect]
     Active Substance: BUDESONIDE
     Indication: Asthma
     Route: 065
  32. FORMOTEROL FUMARATE [Suspect]
     Active Substance: FORMOTEROL FUMARATE
     Indication: Asthma
     Route: 065
  33. LANSOPRAZOLE [Suspect]
     Active Substance: LANSOPRAZOLE
     Route: 065

REACTIONS (6)
  - Asthma [Unknown]
  - Chest pain [Unknown]
  - Hospitalisation [Unknown]
  - Therapeutic product effect incomplete [Unknown]
  - Off label use [Unknown]
  - Product use in unapproved indication [Unknown]
